FAERS Safety Report 9513394 (Version 1)
Quarter: 2013Q3

REPORT INFORMATION
  Report Type: Spontaneous
  Country: US (occurrence: US)
  Receive Date: 20130910
  Receipt Date: 20130910
  Transmission Date: 20140515
  Serious: No
  Sender: FDA-Public Use
  Company Number: US-TARO-2012P1050814

PATIENT
  Age: 67 Year
  Sex: Female
  Weight: 70.31 kg

DRUGS (4)
  1. WARFARIN SODIUM TABLETS USP 2MG [Suspect]
     Route: 048
     Dates: start: 20120717
  2. LEVOTHYROXINE [Concomitant]
  3. LOVASTATIN [Concomitant]
  4. ENOXAPARIN SODIUM 80MG/0.8ML [Concomitant]
     Route: 058
     Dates: start: 20120717

REACTIONS (4)
  - Dyspepsia [Recovered/Resolved]
  - Malaise [Recovered/Resolved]
  - Eructation [Recovered/Resolved]
  - Increased upper airway secretion [Recovered/Resolved]
